FAERS Safety Report 9056765 (Version 1)
Quarter: 2013Q1

REPORT INFORMATION
  Report Type: Spontaneous
  Country: GB (occurrence: GB)
  Receive Date: 20130201
  Receipt Date: 20130201
  Transmission Date: 20140127
  Serious: Yes (Hospitalization)
  Sender: FDA-Public Use
  Company Number: GB-009507513-1301GBR013647

PATIENT
  Age: 33 Year
  Sex: Male

DRUGS (1)
  1. CANCIDAS [Suspect]

REACTIONS (1)
  - Condition aggravated [Unknown]
